FAERS Safety Report 8969556 (Version 1)
Quarter: 2012Q4

REPORT INFORMATION
  Report Type: 
  Country: US (occurrence: US)
  Receive Date: 20121218
  Receipt Date: 20121218
  Transmission Date: 20130627
  Serious: No
  Sender: FDA-Public Use
  Company Number: US-BRISTOL-MYERS SQUIBB COMPANY-16599409

PATIENT
  Age: 43 Year
  Sex: Female

DRUGS (1)
  1. ABILIFY [Suspect]
     Dates: start: 201205, end: 20120505

REACTIONS (2)
  - Hypersensitivity [Unknown]
  - Incorrect dose administered [Unknown]
